FAERS Safety Report 5303501-7 (Version None)
Quarter: 2007Q2

REPORT INFORMATION
  Report Type: 
  Country: None (occurrence: None)
  Receive Date: 20070420
  Receipt Date: 20070413
  Transmission Date: 20071010
  Serious: Yes (Life-Threatening, Hospitalization)
  Sender: FDA-Public Use
  Company Number: GB-PFIZER INC-2007030779

PATIENT
  Age: 49 Year
  Sex: Female

DRUGS (4)
  1. SERTRALINE [Suspect]
  2. PARACETAMOL [Suspect]
  3. CO-PROXAMOL [Suspect]
  4. RISPERDAL [Suspect]

REACTIONS (10)
  - ALANINE AMINOTRANSFERASE INCREASED [None]
  - BLOOD ALKALINE PHOSPHATASE INCREASED [None]
  - BRAIN OEDEMA [None]
  - CSF GLUCOSE DECREASED [None]
  - GAMMA-GLUTAMYLTRANSFERASE INCREASED [None]
  - HEPATIC ENCEPHALOPATHY [None]
  - INTENTIONAL OVERDOSE [None]
  - OLIGURIA [None]
  - PULMONARY OEDEMA [None]
  - SOMNOLENCE [None]
